FAERS Safety Report 12598564 (Version 2)
Quarter: 2016Q3

REPORT INFORMATION
  Report Type: Report from Study
  Country: NO (occurrence: NO)
  Receive Date: 20160727
  Receipt Date: 20160826
  Transmission Date: 20161109
  Serious: Yes (Other)
  Sender: FDA-Public Use
  Company Number: NO-BTG INTERNATIONAL LTD-BTG00797

PATIENT

DRUGS (8)
  1. DEXAMETHASON [Concomitant]
     Active Substance: DEXAMETHASONE
     Indication: PRODUCT USED FOR UNKNOWN INDICATION
     Dosage: 12 MG, QD
     Route: 048
     Dates: start: 20160712, end: 20160715
  2. VORAXAZE [Suspect]
     Active Substance: GLUCARPIDASE
     Indication: TOXICITY TO VARIOUS AGENTS
     Dosage: 2000 IU, SINGLE
     Dates: start: 20160713, end: 20160713
  3. OXYCODONE ACTAVIS [Concomitant]
     Indication: PAIN
     Dosage: 5 MG, BID
     Route: 048
     Dates: start: 201604
  4. APREPITANT. [Concomitant]
     Active Substance: APREPITANT
     Dosage: 8 MG, BID
     Route: 048
     Dates: start: 20160712, end: 20160715
  5. LEUCOVORIN. [Concomitant]
     Active Substance: LEUCOVORIN
     Indication: DRUG CLEARANCE DECREASED
     Dosage: UNK
     Dates: end: 20160713
  6. LEUCOVORIN. [Concomitant]
     Active Substance: LEUCOVORIN
     Dosage: UNK
     Dates: start: 20160713
  7. NEURONTIN [Concomitant]
     Active Substance: GABAPENTIN
     Indication: PAIN
     Dosage: 300 MG, TID
     Route: 048
     Dates: start: 201604
  8. METHOTREXATE. [Suspect]
     Active Substance: METHOTREXATE
     Indication: OSTEOSARCOMA
     Dosage: 22900 MG, UNK
     Route: 042
     Dates: start: 20160712, end: 20160712

REACTIONS (4)
  - Rebound effect [None]
  - Alanine aminotransferase increased [Unknown]
  - Renal failure [Recovered/Resolved]
  - Aspartate aminotransferase increased [Unknown]

NARRATIVE: CASE EVENT DATE: 20160713
